FAERS Safety Report 10278886 (Version 2)
Quarter: 2014Q3

REPORT INFORMATION
  Report Type: Report from Study
  Country: CA (occurrence: CA)
  Receive Date: 20140706
  Receipt Date: 20140722
  Transmission Date: 20150326
  Serious: Yes (Death)
  Sender: FDA-Public Use
  Company Number: PHHY2014CA082860

PATIENT
  Age: 93 Year
  Sex: Female

DRUGS (7)
  1. MAVIK [Concomitant]
     Active Substance: TRANDOLAPRIL
     Dosage: 1 DF, DAILY
  2. ADALAT CC [Concomitant]
     Active Substance: NIFEDIPINE
     Dosage: 60 UKN, 1 DAILY
  3. ACLASTA [Suspect]
     Active Substance: ZOLEDRONIC ACID
     Dosage: UNK
     Route: 042
     Dates: start: 20131001
  4. ACLASTA [Suspect]
     Active Substance: ZOLEDRONIC ACID
     Indication: OSTEOPOROSIS
     Dosage: UNK
     Route: 042
     Dates: start: 20111013
  5. ACLASTA [Suspect]
     Active Substance: ZOLEDRONIC ACID
     Dosage: UNK
     Route: 042
     Dates: start: 20121004
  6. ASA [Concomitant]
     Active Substance: ASPIRIN
     Dosage: 1 DF, DAILY
  7. CELEBREX [Concomitant]
     Active Substance: CELECOXIB
     Dosage: 1 DF, DAILY

REACTIONS (1)
  - Death [Fatal]

NARRATIVE: CASE EVENT DATE: 20140530
